FAERS Safety Report 7514423-5 (Version None)
Quarter: 2011Q2

REPORT INFORMATION
  Report Type: 
  Country: None (occurrence: None)
  Receive Date: 20110601
  Receipt Date: 20110517
  Transmission Date: 20111010
  Serious: Yes (Life-Threatening)
  Sender: FDA-Public Use
  Company Number: GB-RANBAXY-2011R1-44721

PATIENT
  Age: 38 Year
  Sex: Female
  Weight: 90 kg

DRUGS (2)
  1. AMPICILLIN SODIUM/SULBACTAM SODIUM [Suspect]
     Indication: WOUND INFECTION
  2. AMPICILLIN SODIUM/SULBACTAM SODIUM [Suspect]
     Indication: PROPHYLAXIS
     Dosage: 1.2 G, UNK
     Route: 042
     Dates: start: 20101206, end: 20101206

REACTIONS (1)
  - ANAPHYLACTIC REACTION [None]
